FAERS Safety Report 12570052 (Version 1)
Quarter: 2016Q3

REPORT INFORMATION
  Report Type: Spontaneous
  Country: US (occurrence: None)
  Receive Date: 20160718
  Receipt Date: 20160718
  Transmission Date: 20161109
  Serious: Yes (Hospitalization, Other)
  Sender: FDA-Public Use
  Company Number: None

PATIENT
  Sex: Female
  Weight: 76.2 kg

DRUGS (5)
  1. SINGULAIR [Concomitant]
     Active Substance: MONTELUKAST SODIUM
  2. CYMBALTA [Concomitant]
     Active Substance: DULOXETINE HYDROCHLORIDE
  3. CLONIDINE. [Suspect]
     Active Substance: CLONIDINE
     Indication: MENOPAUSAL DISORDER
     Route: 048
  4. WOMEN^S ONE A DAY [Concomitant]
  5. DICYCLOME [Concomitant]

REACTIONS (11)
  - Seizure [None]
  - Withdrawal syndrome [None]
  - Dyspnoea [None]
  - Loss of consciousness [None]
  - Dizziness [None]
  - Headache [None]
  - Blood pressure fluctuation [None]
  - Presyncope [None]
  - Fatigue [None]
  - Impaired work ability [None]
  - Cardiac disorder [None]

NARRATIVE: CASE EVENT DATE: 20160705
